FAERS Safety Report 9234186 (Version 2)
Quarter: 2014Q2

REPORT INFORMATION
  Report Type: Report from Study
  Country: US (occurrence: US)
  Receive Date: 20130416
  Receipt Date: 20140410
  Transmission Date: 20141212
  Serious: Yes (Death)
  Sender: FDA-Public Use
  Company Number: US-ROCHE-1213270

PATIENT
  Sex: Male

DRUGS (6)
  1. VALCYTE [Suspect]
     Indication: COMPLICATIONS OF TRANSPLANT SURGERY
     Route: 065
  2. VALCYTE [Suspect]
     Indication: STEM CELL TRANSPLANT
  3. VALCYTE [Suspect]
     Indication: ACUTE MYELOID LEUKAEMIA
  4. CELLCEPT [Suspect]
     Indication: COMPLICATIONS OF TRANSPLANT SURGERY
     Route: 048
  5. CELLCEPT [Suspect]
     Indication: STEM CELL TRANSPLANT
  6. CELLCEPT [Suspect]
     Indication: ACUTE MYELOID LEUKAEMIA

REACTIONS (1)
  - Death [Fatal]
